FAERS Safety Report 15761720 (Version 4)
Quarter: 2019Q1

REPORT INFORMATION
  Report Type: Spontaneous
  Country: JP (occurrence: JP)
  Receive Date: 20181226
  Receipt Date: 20190226
  Transmission Date: 20190417
  Serious: Yes (Hospitalization, Other)
  Sender: FDA-Public Use
  Company Number: JP-PFM-2018-14164

PATIENT

DRUGS (13)
  1. INCREMIN [Concomitant]
     Active Substance: FERRIC PYROPHOSPHATE
     Indication: ANAEMIA NEONATAL
     Dosage: 2 ML DAILY
     Route: 048
     Dates: start: 20181113, end: 20181122
  2. KAYTWO N [Concomitant]
     Active Substance: MENATETRENONE
     Indication: VITAMIN K DEFICIENCY
     Dosage: UNK
     Route: 048
     Dates: start: 20181011, end: 20181127
  3. HEMANGIOL [Suspect]
     Active Substance: PROPRANOLOL HYDROCHLORIDE
     Dosage: 1 MG/KG, BID (2/DAY)
     Route: 048
     Dates: start: 20181123, end: 20181125
  4. HEMANGIOL [Suspect]
     Active Substance: PROPRANOLOL HYDROCHLORIDE
     Indication: INFANTILE HAEMANGIOMA
     Dosage: 0.5 MG/KG, BID (2/DAY)
     Route: 048
     Dates: start: 20181120, end: 20181122
  5. CALCICOL [Concomitant]
     Active Substance: CALCIUM GLUCONATE
     Dosage: UNK
     Route: 048
     Dates: start: 20181114, end: 20181201
  6. SODIUM PHOSPHATE DIBASIC W/SODIUM PHOSPHATE M [Concomitant]
     Active Substance: SODIUM PHOSPHATE, DIBASIC, HEPTAHYDRATE\SODIUM PHOSPHATE, MONOBASIC, MONOHYDRATE
     Indication: HYPOPHOSPHATAEMIA
     Dosage: 2 ML
     Route: 048
     Dates: start: 20181101, end: 20181113
  7. HEMANGIOL [Suspect]
     Active Substance: PROPRANOLOL HYDROCHLORIDE
     Dosage: 1.5 MG/KG, UNK
     Route: 048
     Dates: start: 20181126, end: 20181126
  8. EPOETIN ALFA [Concomitant]
     Active Substance: ERYTHROPOIETIN
     Indication: ANAEMIA
     Dosage: UNK
     Route: 058
     Dates: start: 20181113, end: 20181201
  9. SODIUM PHOSPHATE DIBASIC W/SODIUM PHOSPHATE M [Concomitant]
     Active Substance: SODIUM PHOSPHATE, DIBASIC, HEPTAHYDRATE\SODIUM PHOSPHATE, MONOBASIC, MONOHYDRATE
     Dosage: UNK
     Route: 048
     Dates: start: 20181114, end: 20181201
  10. CALCICOL [Concomitant]
     Active Substance: CALCIUM GLUCONATE
     Indication: HYPOCALCAEMIA
     Dosage: 7.2 ML DAILY
     Route: 048
     Dates: start: 20181107, end: 20181113
  11. ALFAROL [Concomitant]
     Active Substance: ALFACALCIDOL
     Indication: HYPOCALCAEMIA
     Dosage: 8 ML DAILY
     Route: 048
     Dates: start: 20181114, end: 20181122
  12. VENILON [Concomitant]
     Active Substance: HUMAN IMMUNOGLOBULIN G
     Indication: HYPOGLOBULINAEMIA
     Dosage: UNK
     Route: 042
     Dates: start: 20181122, end: 20181122
  13. SYNAGIS [Concomitant]
     Active Substance: PALIVIZUMAB
     Indication: RESPIRATORY SYNCYTIAL VIRUS INFECTION
     Dosage: UNK
     Route: 030
     Dates: start: 20181121, end: 20181121

REACTIONS (7)
  - Agranulocytosis [Recovering/Resolving]
  - Viral infection [Unknown]
  - Product administered to patient of inappropriate age [Unknown]
  - Drug titration error [Unknown]
  - Rash [Recovered/Resolved]
  - Pyrexia [Recovered/Resolved]
  - Off label use [Unknown]

NARRATIVE: CASE EVENT DATE: 20181121
